FAERS Safety Report 10210904 (Version 2)
Quarter: 2014Q2

REPORT INFORMATION
  Report Type: Spontaneous
  Country: US (occurrence: US)
  Receive Date: 20140602
  Receipt Date: 20140625
  Transmission Date: 20141212
  Serious: Yes (Other)
  Sender: FDA-Public Use
  Company Number: US-PFIZER INC-2014150293

PATIENT
  Age: 77 Year
  Sex: Female
  Weight: 49.43 kg

DRUGS (1)
  1. LYRICA [Suspect]
     Indication: NEUROPATHY PERIPHERAL
     Dosage: 150 MG, (75MGX2) 2X/DAY
     Route: 048

REACTIONS (2)
  - Retinal tear [Unknown]
  - Cataract [Unknown]
